FAERS Safety Report 8979232 (Version 1)
Quarter: 2012Q4

REPORT INFORMATION
  Report Type: 
  Country: SE (occurrence: SE)
  Receive Date: 20121221
  Receipt Date: 20121221
  Transmission Date: 20130627
  Serious: Yes (Hospitalization)
  Sender: FDA-Public Use
  Company Number: SE-GLAXOSMITHKLINE-B0854363A

PATIENT
  Sex: Male

DRUGS (1)
  1. MALARONE [Suspect]
     Indication: MALARIA PROPHYLAXIS
     Dosage: 250MG per day
     Route: 048
     Dates: start: 20120212, end: 20120219

REACTIONS (4)
  - Depressed level of consciousness [Unknown]
  - Convulsion [Unknown]
  - Syncope [Recovered/Resolved]
  - Hallucination [Not Recovered/Not Resolved]
